FAERS Safety Report 9659650 (Version 3)
Quarter: 2013Q4

REPORT INFORMATION
  Report Type: Report from Study
  Country: US (occurrence: US)
  Receive Date: 20131031
  Receipt Date: 20131129
  Transmission Date: 20140711
  Serious: Yes (Hospitalization)
  Sender: FDA-Public Use
  Company Number: US-JNJFOC-20131016390

PATIENT
  Age: 17 Year
  Sex: Female
  Weight: 56.2 kg

DRUGS (3)
  1. REMICADE [Suspect]
     Indication: INFLAMMATORY BOWEL DISEASE
     Route: 042
     Dates: start: 20110317
  2. VICODIN [Concomitant]
     Route: 065
  3. 5-ASA [Concomitant]
     Route: 054

REACTIONS (1)
  - Clostridium difficile colitis [Recovered/Resolved]
